FAERS Safety Report 25237771 (Version 1)
Quarter: 2025Q2

REPORT INFORMATION
  Report Type: Spontaneous
  Country: US (occurrence: US)
  Receive Date: 20250425
  Receipt Date: 20250425
  Transmission Date: 20250717
  Serious: No
  Sender: CHATTEM
  Company Number: US-OPELLA-2025OHG012044

PATIENT
  Age: 50 Year
  Sex: Female

DRUGS (3)
  1. FEXOFENADINE [Suspect]
     Active Substance: FEXOFENADINE HYDROCHLORIDE
     Indication: Systemic mastocytosis
  2. FAMOTIDINE [Concomitant]
     Active Substance: FAMOTIDINE
     Indication: Systemic mastocytosis
  3. CROMOLYN [Concomitant]
     Active Substance: CROMOLYN
     Indication: Systemic mastocytosis

REACTIONS (3)
  - Off label use [Unknown]
  - Drug effective for unapproved indication [Unknown]
  - No adverse event [Unknown]
